FAERS Safety Report 7135926-1 (Version None)
Quarter: 2010Q4

REPORT INFORMATION
  Report Type: 
  Country: None (occurrence: None)
  Receive Date: 20101204
  Receipt Date: 20101117
  Transmission Date: 20110411
  Serious: Yes (Other)
  Sender: FDA-Public Use
  Company Number: US-BAYER-201038439NA

PATIENT

DRUGS (5)
  1. NEXAVAR [Suspect]
     Route: 048
     Dates: start: 20101014, end: 20101026
  2. NEXAVAR [Suspect]
     Route: 048
     Dates: start: 20101105
  3. INSULIN [Concomitant]
     Dosage: 2UNITS IN AM AND 2 UNITS AT NOON
  4. INSULIN [Concomitant]
     Dosage: 5 UNITS IN PM
  5. RIFAXIMIN [Concomitant]
     Indication: GASTROINTESTINAL BACTERIAL INFECTION
     Route: 048
     Dates: start: 20101115

REACTIONS (4)
  - DIARRHOEA [None]
  - OESOPHAGEAL VARICES HAEMORRHAGE [None]
  - SKIN DISORDER [None]
  - SKIN HAEMORRHAGE [None]
